FAERS Safety Report 6846541-9 (Version None)
Quarter: 2010Q3

REPORT INFORMATION
  Report Type: 
  Country: None (occurrence: None)
  Receive Date: 20100715
  Receipt Date: 20070914
  Transmission Date: 20110219
  Serious: Yes (Other)
  Sender: FDA-Public Use
  Company Number: US-PFIZER INC-2007078533

PATIENT
  Sex: Female

DRUGS (6)
  1. CHANTIX [Suspect]
     Indication: SMOKING CESSATION THERAPY
     Dates: start: 20070101, end: 20070914
  2. IBANDRONATE SODIUM [Concomitant]
  3. THYROID TAB [Concomitant]
  4. VITAMINS [Concomitant]
  5. CALCIUM [Concomitant]
  6. ACETYLSALICYLIC ACID [Concomitant]

REACTIONS (1)
  - SWELLING [None]
